FAERS Safety Report 5560544-6 (Version None)
Quarter: 2007Q4

REPORT INFORMATION
  Report Type: 
  Country: None (occurrence: None)
  Receive Date: 20071215
  Receipt Date: 20071110
  Transmission Date: 20080405
  Serious: No
  Sender: FDA-Public Use
  Company Number: US-ABBOTT-07P-163-0424759-00

PATIENT
  Sex: Female

DRUGS (5)
  1. HUMIRA [Suspect]
     Indication: RHEUMATOID ARTHRITIS
     Route: 058
     Dates: start: 20071027
  2. SOTALOL HYDROCHLORIDE [Concomitant]
     Indication: HEART RATE INCREASED
     Route: 048
     Dates: start: 20070601
  3. METHOTREXATE [Concomitant]
     Indication: RHEUMATOID ARTHRITIS
  4. FOLIC ACID [Concomitant]
     Indication: RHEUMATOID ARTHRITIS
  5. PREDNISONE [Concomitant]
     Indication: RHEUMATOID ARTHRITIS

REACTIONS (5)
  - COUGH [None]
  - HEADACHE [None]
  - INJECTION SITE IRRITATION [None]
  - SINUSITIS [None]
  - VIRAL INFECTION [None]
